FAERS Safety Report 5794483-2 (Version None)
Quarter: 2008Q2

REPORT INFORMATION
  Report Type: 
  Country: None (occurrence: None)
  Receive Date: 20080630
  Receipt Date: 20080624
  Transmission Date: 20081010
  Serious: Yes (Disabling)
  Sender: FDA-Public Use
  Company Number: IT-WYE-G00525907

PATIENT
  Sex: Female
  Weight: 75 kg

DRUGS (3)
  1. EFFEXOR [Suspect]
     Indication: MAJOR DEPRESSION
     Route: 048
     Dates: start: 19990701, end: 20070827
  2. EFFEXOR [Suspect]
     Route: 048
     Dates: start: 20070828
  3. RISPERIDONE [Concomitant]
     Indication: PSYCHOTIC DISORDER
     Route: 048
     Dates: start: 19990701

REACTIONS (1)
  - OSTEONECROSIS [None]
